FAERS Safety Report 15397965 (Version 2)
Quarter: 2018Q4

REPORT INFORMATION
  Report Type: Report from Study
  Country: FR (occurrence: FR)
  Receive Date: 20180918
  Receipt Date: 20181022
  Transmission Date: 20190204
  Serious: Yes (Hospitalization)
  Sender: FDA-Public Use
  Company Number: FR-ASTRAZENECA-2018SF15994

PATIENT
  Age: 64 Year
  Sex: Male

DRUGS (11)
  1. ACETYLSALICYLIC ACID [Concomitant]
     Active Substance: ASPIRIN
     Dates: start: 20170701
  2. PARACETAMOL [Concomitant]
     Active Substance: ACETAMINOPHEN
     Dates: start: 20180207
  3. MEDI4736 [Suspect]
     Active Substance: DURVALUMAB
     Indication: NON-SMALL CELL LUNG CANCER
     Route: 042
     Dates: start: 20171212
  4. ATORVASTATIN [Concomitant]
     Active Substance: ATORVASTATIN
     Dates: start: 20020101
  5. VALSARTAN. [Concomitant]
     Active Substance: VALSARTAN
     Dates: start: 20010101
  6. PRAVASTATIN. [Concomitant]
     Active Substance: PRAVASTATIN
     Dates: start: 20020101
  7. ESOMEPRAZOLE. [Concomitant]
     Active Substance: ESOMEPRAZOLE MAGNESIUM
     Dates: start: 20170601
  8. SITAGLIPTIN [Concomitant]
     Active Substance: SITAGLIPTIN
     Dates: start: 20140601
  9. DILTIAZEM. [Concomitant]
     Active Substance: DILTIAZEM
     Dates: start: 20170308
  10. ALLOPURINOL. [Concomitant]
     Active Substance: ALLOPURINOL
     Dates: start: 20140101
  11. GLICLAZIDE [Concomitant]
     Active Substance: GLICLAZIDE
     Dates: start: 20100301

REACTIONS (1)
  - Hypophysitis [Recovered/Resolved]

NARRATIVE: CASE EVENT DATE: 20180822
